FAERS Safety Report 7724708-5 (Version None)
Quarter: 2011Q3

REPORT INFORMATION
  Report Type: 
  Country: None (occurrence: None)
  Receive Date: 20110901
  Receipt Date: 20110819
  Transmission Date: 20111222
  Serious: No
  Sender: FDA-Public Use
  Company Number: US-B.I. PHARMACEUTICALS,INC./RIDGEFIELD-2011-BP-20442BP

PATIENT
  Sex: Female

DRUGS (8)
  1. SPIRIVA [Suspect]
     Indication: CHRONIC OBSTRUCTIVE PULMONARY DISEASE
     Dosage: 18 MCG
     Route: 055
     Dates: start: 20100101
  2. HYDROCHLOROTHIAZIDE [Concomitant]
     Indication: BLOOD PRESSURE
  3. LIPITOR [Concomitant]
     Indication: BLOOD CHOLESTEROL INCREASED
  4. ADVAIR DISKUS 100/50 [Concomitant]
     Indication: CHRONIC OBSTRUCTIVE PULMONARY DISEASE
  5. ATIVAN [Concomitant]
     Indication: ANXIETY
  6. ASPIRIN [Concomitant]
     Indication: PROPHYLAXIS
  7. TENORMIN [Concomitant]
     Indication: BLOOD PRESSURE
  8. ALBUTEROL SULFATE AUTOHALER [Concomitant]
     Indication: CHRONIC OBSTRUCTIVE PULMONARY DISEASE

REACTIONS (1)
  - CHEST DISCOMFORT [None]
